FAERS Safety Report 9187903 (Version 1)
Quarter: 2013Q1

REPORT INFORMATION
  Report Type: Spontaneous
  Country: US (occurrence: US)
  Receive Date: 20130325
  Receipt Date: 20130325
  Transmission Date: 20140127
  Serious: No
  Sender: FDA-Public Use
  Company Number: US-MYLANLABS-2012S1016508

PATIENT
  Age: 61 Year
  Sex: Female
  Weight: 70.31 kg

DRUGS (7)
  1. FENTANYL TRANSDERMAL SYSTEM [Suspect]
     Indication: BACK PAIN
     Dosage: CHANGES  EVERY 5 DAYS
     Route: 062
     Dates: start: 2008
  2. ATENOLOL [Concomitant]
     Indication: BLOOD PRESSURE INCREASED
     Route: 048
  3. HCTZ [Concomitant]
     Indication: BLOOD PRESSURE INCREASED
     Route: 048
  4. LIPITOR [Concomitant]
     Indication: BLOOD CHOLESTEROL INCREASED
     Route: 048
  5. GEODON [Concomitant]
     Indication: BIPOLAR DISORDER
     Route: 048
  6. KLONOPIN [Concomitant]
     Indication: POST-TRAUMATIC STRESS DISORDER
     Route: 048
  7. WELLBUTRIN SR [Concomitant]
     Indication: DEPRESSION
     Route: 048

REACTIONS (2)
  - Drug withdrawal syndrome [Recovered/Resolved]
  - Incorrect drug administration duration [Not Recovered/Not Resolved]
